FAERS Safety Report 5201992-3 (Version None)
Quarter: 2007Q1

REPORT INFORMATION
  Report Type: 
  Country: None (occurrence: None)
  Receive Date: 20070104
  Receipt Date: 20070104
  Transmission Date: 20070707
  Serious: Yes (Hospitalization, Other)
  Sender: FDA-Public Use
  Company Number: None

PATIENT
  Age: 49 Year
  Sex: Female
  Weight: 77.1115 kg

DRUGS (2)
  1. COREG [Suspect]
     Indication: HEART RATE INCREASED
     Dosage: 6.25 MG.  TWICE DAILY  PO
     Route: 048
     Dates: start: 20051209, end: 20051211
  2. COREG [Suspect]
     Dosage: 12.5 MG. AND THEN REDUCED   TWICE DAILY  PO
     Route: 048
     Dates: start: 20051212, end: 20051229

REACTIONS (4)
  - ASTHENIA [None]
  - BLOOD GLUCOSE DECREASED [None]
  - BLOOD GLUCOSE INCREASED [None]
  - SURGERY [None]
